FAERS Safety Report 11050497 (Version 2)
Quarter: 2015Q2

REPORT INFORMATION
  Report Type: Spontaneous
  Country: FR (occurrence: FR)
  Receive Date: 20150421
  Receipt Date: 20150430
  Transmission Date: 20150821
  Serious: Yes (Death, Life-Threatening, Hospitalization)
  Sender: FDA-Public Use
  Company Number: FR-ACCORD-030215

PATIENT
  Age: 68 Year
  Sex: Male

DRUGS (6)
  1. CISPLATIN. [Concomitant]
     Active Substance: CISPLATIN
     Indication: PHARYNGEAL NEOPLASM
     Dosage: FROM THE FIRST DAY TO THE FIFTH DAY DURING 2 HOURS??32 MG
  2. METHYLPREDNISOLONE. [Concomitant]
     Active Substance: METHYLPREDNISOLONE
     Route: 042
  3. DOCETAXEL ACCORD [Suspect]
     Active Substance: DOCETAXEL
     Indication: PHARYNGEAL NEOPLASM
     Dosage: BATCH NUMBER: R08562??AT DAY 1 DURING 1 HOUR
     Route: 042
     Dates: start: 20150126
  4. FLUOROURACIL. [Concomitant]
     Active Substance: FLUOROURACIL
     Indication: PHARYNGEAL NEOPLASM
     Dosage: 3.75 G/M2 (6.075 G) FROM DAY-1 TO INCLUDING DAY-5
  5. ONDANSETRON [Concomitant]
     Active Substance: ONDANSETRON
     Route: 042
  6. BIONOLYTE [Concomitant]
     Active Substance: UNSPECIFIED INGREDIENT
     Dosage: BIONOLYTE 1L

REACTIONS (9)
  - Intestinal dilatation [Fatal]
  - Blood electrolytes abnormal [Fatal]
  - Decreased appetite [Unknown]
  - Renal failure [Unknown]
  - Septic shock [Fatal]
  - General physical condition abnormal [Unknown]
  - Abdominal pain [Fatal]
  - Diarrhoea [Unknown]
  - Inflammation [Unknown]

NARRATIVE: CASE EVENT DATE: 20150204
